FAERS Safety Report 4935318-7 (Version None)
Quarter: 2006Q1

REPORT INFORMATION
  Report Type: 
  Country: None (occurrence: None)
  Receive Date: 20060307
  Receipt Date: 20060222
  Transmission Date: 20060701
  Serious: Yes (Hospitalization)
  Sender: FDA-Public Use
  Company Number: US-AMGEN-US170481

PATIENT
  Sex: Male
  Weight: 59 kg

DRUGS (1)
  1. PROCRIT [Suspect]
     Indication: ANAEMIA
     Route: 058
     Dates: start: 20050801, end: 20060128

REACTIONS (3)
  - DIALYSIS [None]
  - PANCYTOPENIA [None]
  - RENAL FAILURE ACUTE [None]
